FAERS Safety Report 7761614-4 (Version None)
Quarter: 2011Q3

REPORT INFORMATION
  Report Type: 
  Country: None (occurrence: None)
  Receive Date: 20110915
  Receipt Date: 20110830
  Transmission Date: 20111222
  Serious: Yes (Other)
  Sender: FDA-Public Use
  Company Number: 2011AP001923

PATIENT
  Age: 46 Year
  Sex: Female

DRUGS (1)
  1. PAROXETINE HCL [Suspect]
     Indication: PRODUCT USED FOR UNKNOWN INDICATION

REACTIONS (13)
  - HYPERHIDROSIS [None]
  - ABDOMINAL DISCOMFORT [None]
  - HEADACHE [None]
  - ANXIETY [None]
  - DIZZINESS [None]
  - INSOMNIA [None]
  - AFFECT LABILITY [None]
  - CRYING [None]
  - PALPITATIONS [None]
  - WITHDRAWAL SYNDROME [None]
  - MOOD ALTERED [None]
  - AGITATION [None]
  - NAUSEA [None]
